FAERS Safety Report 19117845 (Version 9)
Quarter: 2024Q3

REPORT INFORMATION
  Report Type: Report from Study
  Country: CA (occurrence: CA)
  Receive Date: 20210409
  Receipt Date: 20240705
  Transmission Date: 20241016
  Serious: Yes (Hospitalization, Other)
  Sender: NOVARTIS
  Company Number: PHHY2016CA146558

PATIENT
  Age: 40 Year
  Sex: Female

DRUGS (6)
  1. SANDOSTATIN LAR DEPOT [Suspect]
     Active Substance: OCTREOTIDE ACETATE
     Indication: Acromegaly
     Dosage: 20 MG, QMO (EVERY 4 WEEK)
     Route: 030
     Dates: start: 20150610
  2. SANDOSTATIN LAR DEPOT [Suspect]
     Active Substance: OCTREOTIDE ACETATE
     Dosage: 10 MG, QMO (ONCE A MONTH)
     Route: 030
  3. SANDOSTATIN LAR DEPOT [Suspect]
     Active Substance: OCTREOTIDE ACETATE
     Dosage: UNK
     Route: 065
     Dates: start: 20240524
  4. PROMETRIUM [Concomitant]
     Active Substance: PROGESTERONE
     Indication: Product used for unknown indication
     Dosage: UNK
     Route: 065
  5. CALCIUM [Concomitant]
     Active Substance: CALCIUM
     Indication: Product used for unknown indication
     Dosage: UNK
     Route: 065
  6. LANTUS [Concomitant]
     Active Substance: INSULIN GLARGINE
     Indication: Diabetes mellitus
     Dosage: UNK, QD (AT NIGHT)
     Route: 065
     Dates: start: 2017

REACTIONS (28)
  - Influenza [Unknown]
  - Pneumonia [Recovering/Resolving]
  - Eye infection bacterial [Unknown]
  - Hypothyroidism [Unknown]
  - Nasopharyngitis [Recovering/Resolving]
  - Nasal congestion [Recovering/Resolving]
  - Ocular hyperaemia [Unknown]
  - Erythema [Unknown]
  - Fatigue [Recovered/Resolved]
  - Swelling face [Unknown]
  - Gastroenteritis viral [Recovered/Resolved]
  - Illness [Unknown]
  - Infection [Unknown]
  - Eye infection [Recovered/Resolved]
  - Corneal laceration [Unknown]
  - Blood pressure increased [Unknown]
  - Carpal tunnel syndrome [Unknown]
  - Anaemia [Unknown]
  - SARS-CoV-2 test positive [Recovered/Resolved]
  - Oropharyngeal pain [Unknown]
  - Rhinorrhoea [Unknown]
  - COVID-19 [Unknown]
  - Cough [Unknown]
  - Somnolence [Unknown]
  - Hyperlipidaemia [Unknown]
  - Nausea [Unknown]
  - Blood glucose increased [Unknown]
  - Diarrhoea [Recovered/Resolved]

NARRATIVE: CASE EVENT DATE: 20161001
